FAERS Safety Report 9025983 (Version 1)
Quarter: 2013Q1

REPORT INFORMATION
  Report Type: Spontaneous
  Country: CL (occurrence: CL)
  Receive Date: 20130122
  Receipt Date: 20130122
  Transmission Date: 20140127
  Serious: Yes (Other)
  Sender: FDA-Public Use
  Company Number: CL-ROCHE-1181478

PATIENT
  Sex: Female
  Weight: 75 kg

DRUGS (1)
  1. XENICAL [Suspect]
     Indication: OBESITY
     Route: 048
     Dates: start: 20130114, end: 20130116

REACTIONS (1)
  - Haemorrhoids [Not Recovered/Not Resolved]
